FAERS Safety Report 7252931-5 (Version None)
Quarter: 2011Q1

REPORT INFORMATION
  Report Type: 
  Country: None (occurrence: None)
  Receive Date: 20110129
  Receipt Date: 20100322
  Transmission Date: 20110831
  Serious: Yes (Other)
  Sender: FDA-Public Use
  Company Number: US-ABBOTT-10P-163-0633737-00

PATIENT
  Sex: Male

DRUGS (3)
  1. CARVEDILOL [Concomitant]
     Indication: PRODUCT USED FOR UNKNOWN INDICATION
  2. HUMIRA [Suspect]
     Indication: RHEUMATOID ARTHRITIS
     Dates: start: 20050101
  3. HYZAAR [Concomitant]
     Indication: PRODUCT USED FOR UNKNOWN INDICATION

REACTIONS (6)
  - HYPERKERATOSIS [None]
  - CHRONIC OBSTRUCTIVE PULMONARY DISEASE [None]
  - LOCALISED INFECTION [None]
  - EMPHYSEMA [None]
  - MYOCARDIAL INFARCTION [None]
  - DYSPNOEA [None]
